FAERS Safety Report 8455203-6 (Version None)
Quarter: 2012Q2

REPORT INFORMATION
  Report Type: 
  Country: None (occurrence: None)
  Receive Date: 20120621
  Receipt Date: 20120612
  Transmission Date: 20120825
  Serious: Yes (Hospitalization)
  Sender: FDA-Public Use
  Company Number: JP-ASTELLAS-2012JP005433

PATIENT
  Age: 30 Year
  Sex: Female
  Weight: 48 kg

DRUGS (2)
  1. FLUVOXAMINE MALEATE [Concomitant]
     Indication: PANIC DISORDER
     Route: 048
  2. VESICARE [Suspect]
     Indication: URINARY INCONTINENCE
     Dosage: UNK
     Route: 048
     Dates: start: 20060101

REACTIONS (2)
  - URINARY RETENTION [None]
  - ACUTE MYOCARDIAL INFARCTION [None]
